FAERS Safety Report 9729551 (Version 3)
Quarter: 2014Q1

REPORT INFORMATION
  Report Type: Spontaneous
  Country: BR (occurrence: BR)
  Receive Date: 20131204
  Receipt Date: 20140313
  Transmission Date: 20141002
  Serious: Yes (Other)
  Sender: FDA-Public Use
  Company Number: BR-VERTEX PHARMACEUTICALS INC-2013-011571

PATIENT
  Sex: Male

DRUGS (6)
  1. INCIVO [Suspect]
     Indication: HEPATITIS C
     Dosage: 1125 MG, BID
     Route: 065
  2. INCIVO [Suspect]
     Route: 065
  3. INTERFERON [Concomitant]
     Indication: HEPATITIS C
     Dosage: 180 ?G, QW
     Route: 065
  4. INTERFERON [Concomitant]
     Dosage: DOSAGE FORM: UNKNOWN
  5. RIBAVIRIN [Concomitant]
     Indication: HEPATITIS C
     Dosage: 3 DF, BID
  6. RIBAVIRIN [Concomitant]
     Dosage: DOSAGE FORM: UNKNOWN
     Route: 065

REACTIONS (7)
  - Feeling abnormal [Unknown]
  - Depressed mood [Unknown]
  - Skin disorder [Not Recovered/Not Resolved]
  - Varicose vein [Not Recovered/Not Resolved]
  - Asthenia [Unknown]
  - Pruritus [Not Recovered/Not Resolved]
  - Platelet count decreased [Unknown]
